FAERS Safety Report 22146042 (Version 3)
Quarter: 2023Q2

REPORT INFORMATION
  Report Type: Other
  Country: US (occurrence: None)
  Receive Date: 20230328
  Receipt Date: 20230507
  Transmission Date: 20230721
  Serious: No
  Sender: FDA-Public Use
  Company Number: US-ROCHE-3318462

PATIENT
  Age: 47 Year
  Sex: Female
  Weight: 70.370 kg

DRUGS (3)
  1. OCREVUS [Suspect]
     Active Substance: OCRELIZUMAB
     Indication: Relapsing-remitting multiple sclerosis
     Dosage: DATE OF SERVICE: 25/AUG/2022, 11/FEB/2022, 06/AUG/2021
     Route: 042
     Dates: start: 201810
  2. MECLIZINE [Concomitant]
     Active Substance: MECLIZINE HYDROCHLORIDE
  3. DULOXETINE [Concomitant]
     Active Substance: DULOXETINE

REACTIONS (6)
  - Stress [Not Recovered/Not Resolved]
  - COVID-19 [Recovered/Resolved]
  - Off label use [Unknown]
  - Somnolence [Unknown]
  - Balance disorder [Unknown]
  - Hypoaesthesia [Unknown]

NARRATIVE: CASE EVENT DATE: 20210601
